FAERS Safety Report 14953984 (Version 1)
Quarter: 2018Q2

REPORT INFORMATION
  Report Type: Report from Study
  Country: US (occurrence: US)
  Receive Date: 20180530
  Receipt Date: 20180530
  Transmission Date: 20180711
  Serious: Yes (Hospitalization)
  Sender: FDA-Public Use
  Company Number: US-PUMA BIOTECHNOLOGY, LTD.-2018US002351

PATIENT

DRUGS (4)
  1. IMODIUM [Concomitant]
     Active Substance: LOPERAMIDE HYDROCHLORIDE
     Indication: PROPHYLAXIS AGAINST DIARRHOEA
     Dosage: 4 MG, BID
  2. NERLYNX [Suspect]
     Active Substance: NERATINIB
     Indication: BREAST CANCER
     Dosage: 80 MG, DAILY
     Route: 048
     Dates: start: 20180225
  3. NERLYNX [Suspect]
     Active Substance: NERATINIB
     Dosage: 80 MG, DAILY
     Dates: start: 20180322, end: 20180413
  4. NERLYNX [Suspect]
     Active Substance: NERATINIB
     Dosage: 40 MG, DAILY
     Route: 048
     Dates: start: 20180501

REACTIONS (15)
  - Musculoskeletal stiffness [Unknown]
  - Urinary tract infection [Unknown]
  - Thrombosis [Recovering/Resolving]
  - Abdominal discomfort [Unknown]
  - White blood cell count increased [Unknown]
  - Dizziness [Unknown]
  - Diarrhoea [Not Recovered/Not Resolved]
  - Hospitalisation [Unknown]
  - Anaemia [Unknown]
  - Depression [Unknown]
  - Nausea [Recovering/Resolving]
  - Liver function test increased [Recovered/Resolved]
  - Incorrect dose administered [Unknown]
  - Vomiting [Not Recovered/Not Resolved]
  - Fatigue [Unknown]
